FAERS Safety Report 5486042-6 (Version None)
Quarter: 2007Q4

REPORT INFORMATION
  Report Type: 
  Country: None (occurrence: None)
  Receive Date: 20071012
  Receipt Date: 20071005
  Transmission Date: 20080405
  Serious: Yes (Hospitalization)
  Sender: FDA-Public Use
  Company Number: 2007SP020205

PATIENT
  Sex: Female

DRUGS (3)
  1. NOXAFIL [Suspect]
     Indication: PROPHYLAXIS
     Dosage: ;PO
     Route: 048
     Dates: start: 20070929, end: 20071003
  2. PHOTOTHERAPY [Concomitant]
  3. VFEND [Concomitant]

REACTIONS (1)
  - ACUTE GENERALISED EXANTHEMATOUS PUSTULOSIS [None]
